FAERS Safety Report 9454713 (Version 2)
Quarter: 2013Q4

REPORT INFORMATION
  Report Type: Spontaneous
  Country: NZ (occurrence: NZ)
  Receive Date: 20130812
  Receipt Date: 20131018
  Transmission Date: 20140711
  Serious: Yes (Hospitalization, Other)
  Sender: FDA-Public Use
  Company Number: NZ-ELI_LILLY_AND_COMPANY-NZ201307010665

PATIENT
  Age: 70 Year
  Sex: Female
  Weight: 47 kg

DRUGS (6)
  1. ZYPREXA RELPREVV [Suspect]
     Dosage: 405 MG, MONTHLY (1/M)
     Route: 030
     Dates: start: 20121012
  2. ZYPREXA RELPREVV [Suspect]
     Dosage: UNK, UNKNOWN
     Dates: start: 20130820
  3. ZOPICLONE [Concomitant]
     Dosage: 7.5 MG, EACH EVENING
     Route: 048
  4. LOSEC [Concomitant]
     Dosage: 1 DF, EACH MORNING
  5. DHC [Concomitant]
  6. CILAZAPRIL [Concomitant]
     Dosage: 2.5 MG, EACH MORNING

REACTIONS (9)
  - Circulatory collapse [Recovered/Resolved]
  - Palpitations [Recovered/Resolved]
  - Cyanosis [Recovered/Resolved]
  - Unresponsive to stimuli [Recovered/Resolved]
  - Coma [Recovered/Resolved]
  - Confusional state [Recovered/Resolved]
  - Disorientation [Recovered/Resolved]
  - Hypertension [Recovered/Resolved]
  - Sedation [Recovered/Resolved]
